FAERS Safety Report 9788574 (Version 1)
Quarter: 2013Q4

REPORT INFORMATION
  Report Type: Spontaneous
  Country: US (occurrence: US)
  Receive Date: 20131230
  Receipt Date: 20131230
  Transmission Date: 20140711
  Serious: Yes (Other)
  Sender: FDA-Public Use
  Company Number: US-ELI_LILLY_AND_COMPANY-US201312006677

PATIENT
  Sex: Female

DRUGS (4)
  1. HUMALOG LISPRO [Suspect]
     Indication: TYPE 2 DIABETES MELLITUS
     Dosage: 10 U, QD
     Route: 065
  2. ATORVASTATIN [Concomitant]
  3. LANTUS [Concomitant]
  4. PLAVIX [Concomitant]

REACTIONS (3)
  - Myocardial infarction [Unknown]
  - Medication error [Unknown]
  - Incorrect product storage [Unknown]
